FAERS Safety Report 23060830 (Version 2)
Quarter: 2023Q4

REPORT INFORMATION
  Report Type: Spontaneous
  Country: IN (occurrence: IN)
  Receive Date: 20231012
  Receipt Date: 20231019
  Transmission Date: 20240110
  Serious: Yes (Other)
  Sender: FDA-Public Use
  Company Number: IN-BAYER-2023A141525

PATIENT
  Age: 74 Year
  Sex: Female

DRUGS (2)
  1. XARELTO [Suspect]
     Active Substance: RIVAROXABAN
     Indication: Atrial fibrillation
     Dosage: UNK
     Route: 048
     Dates: start: 20210701
  2. ROSUVASTATIN;TELMISARTAN [Concomitant]
     Indication: Hypertension

REACTIONS (2)
  - Lipoma [Not Recovered/Not Resolved]
  - Wound secretion [Not Recovered/Not Resolved]
